FAERS Safety Report 21968695 (Version 1)
Quarter: 2023Q1

REPORT INFORMATION
  Report Type: Spontaneous
  Country: US (occurrence: US)
  Receive Date: 20230208
  Receipt Date: 20230208
  Transmission Date: 20230417
  Serious: Yes (Other)
  Sender: FDA-Public Use
  Company Number: US-PFIZER INC-PV202300022928

PATIENT
  Age: 33 Year
  Sex: Female

DRUGS (1)
  1. XELJANZ [Suspect]
     Active Substance: TOFACITINIB CITRATE
     Dosage: UNK

REACTIONS (7)
  - Crohn^s disease [Unknown]
  - Adrenal insufficiency [Unknown]
  - Intestinal obstruction [Unknown]
  - Small intestinal obstruction [Unknown]
  - Foot fracture [Unknown]
  - Colitis [Unknown]
  - Illness [Unknown]
